FAERS Safety Report 4577844-9 (Version None)
Quarter: 2005Q1

REPORT INFORMATION
  Report Type: 
  Country: None (occurrence: None)
  Receive Date: 20050209
  Receipt Date: 20050127
  Transmission Date: 20050727
  Serious: Yes (Hospitalization)
  Sender: FDA-Public Use
  Company Number: 2005-BP-01265MX

PATIENT
  Age: 70 Year
  Sex: Male

DRUGS (7)
  1. COMBIVENT [Suspect]
     Indication: BRONCHITIS ACUTE
     Dosage: 0.5/2.5 MG (SEE TEXT, 1 LOW O.D. (STRENGTH: 0.5/2.5 MG))
     Route: 042
     Dates: start: 20050101, end: 20050101
  2. ENALAPRIL MALEATE [Concomitant]
  3. INTERMEDIATE ACTING (NPH) INSULIN (LOI) [Concomitant]
  4. SHORT ACTING (REGULAR) INSULIN (LOI) [Concomitant]
  5. GLYBENCLAMIDE [Concomitant]
  6. GATIFLOXACIN [Concomitant]
  7. AMINOPHYLLIN [Concomitant]

REACTIONS (3)
  - MEDICATION ERROR [None]
  - SUPRAVENTRICULAR TACHYCARDIA [None]
  - TREMOR [None]
